FAERS Safety Report 5481881-X (Version None)
Quarter: 2007Q4

REPORT INFORMATION
  Report Type: 
  Country: None (occurrence: None)
  Receive Date: 20071005
  Receipt Date: 20070905
  Transmission Date: 20080405
  Serious: Yes (Other)
  Sender: FDA-Public Use
  Company Number: TPA2007A01860

PATIENT
  Age: 65 Year
  Sex: Female
  Weight: 108.8633 kg

DRUGS (7)
  1. ACTOPLUS MET [Suspect]
     Indication: TYPE 2 DIABETES MELLITUS
     Dosage: 15 MG/850 MG BID, PER ORAL
     Route: 048
     Dates: start: 20070529, end: 20070905
  2. LIPITOR [Concomitant]
  3. FOSAMAX [Concomitant]
  4. ENALAPRIL MALEATE [Concomitant]
  5. ASPIRIN [Concomitant]
  6. VITAMIN D/CALCIUM (ERGOCALCIFEROL, CALCIUM PHOSPHATE, CALCIUM SODIUM L [Concomitant]
  7. DETROL LA [Concomitant]

REACTIONS (6)
  - MUSCULAR WEAKNESS [None]
  - MYOPATHY [None]
  - PAIN IN EXTREMITY [None]
  - PARAESTHESIA [None]
  - PRURITUS [None]
  - RASH [None]
